FAERS Safety Report 4532327-7 (Version None)
Quarter: 2004Q4

REPORT INFORMATION
  Report Type: 
  Country: None (occurrence: None)
  Receive Date: 20041206
  Receipt Date: 20040914
  Transmission Date: 20050328
  Serious: Yes (Death)
  Sender: FDA-Public Use
  Company Number: USA040978238

PATIENT
  Age: 75 Year
  Sex: Male

DRUGS (9)
  1. CYMBALTA [Suspect]
     Indication: DEPRESSION
     Dosage: 60 MG
  2. BACLOFEN [Concomitant]
  3. OXYCODONE AND ACETAMINOPHEN [Concomitant]
  4. DITROPAN XL [Concomitant]
  5. HYDROCHLOROTHIAZIDE [Concomitant]
  6. METHADONE HCL [Concomitant]
  7. METOPROLOL [Concomitant]
  8. SULFASALAZINE [Concomitant]
  9. PURINETHOL [Concomitant]

REACTIONS (1)
  - COMPLETED SUICIDE [None]
